FAERS Safety Report 16199937 (Version 1)
Quarter: 2019Q2

REPORT INFORMATION
  Report Type: Spontaneous
  Country: US (occurrence: US)
  Receive Date: 20190415
  Receipt Date: 20190415
  Transmission Date: 20190711
  Serious: Yes (Other)
  Sender: FDA-Public Use
  Company Number: US-ALLERGAN-1916072US

PATIENT
  Sex: Female

DRUGS (19)
  1. VITAMIN D3 [Concomitant]
     Active Substance: CHOLECALCIFEROL
     Dosage: 1 DF, QD
     Route: 048
     Dates: start: 20141014
  2. TEMOVATE [Concomitant]
     Active Substance: CLOBETASOL PROPIONATE
     Dosage: 1 DF, BID
     Route: 061
     Dates: start: 20161108, end: 20190213
  3. FOLVITE [Concomitant]
     Active Substance: FOLIC ACID
     Dosage: 1 DF, QD
     Route: 048
     Dates: start: 20110616, end: 20190213
  4. APREMILAST [Concomitant]
     Active Substance: APREMILAST
     Dosage: 30 MG, BID
     Route: 048
  5. ZYRTEC [Concomitant]
     Active Substance: CETIRIZINE HYDROCHLORIDE
     Dosage: 10 MG, BID
     Route: 048
     Dates: start: 20161108
  6. DESOWEN [Concomitant]
     Active Substance: DESONIDE
     Dosage: 1 DF, BID
     Route: 061
     Dates: start: 20161108, end: 20190213
  7. PLAQUENIL [Concomitant]
     Active Substance: HYDROXYCHLOROQUINE SULFATE
     Dosage: 200 MG, BID
     Route: 048
     Dates: end: 20190213
  8. ASPIRIN. [Concomitant]
     Active Substance: ASPIRIN
     Dosage: 81 MG, QD
     Route: 048
     Dates: start: 20150526
  9. NORCO [Suspect]
     Active Substance: ACETAMINOPHEN\HYDROCODONE BITARTRATE
     Indication: PRODUCT USED FOR UNKNOWN INDICATION
     Dosage: 1 TABLET (7.5-325 MG), Q8HR AS NEEDED
     Route: 048
     Dates: start: 20160503
  10. PREMARIN [Concomitant]
     Active Substance: ESTROGENS, CONJUGATED
     Dosage: 1 G 3 TIMES A WEEK
     Route: 067
  11. DAILY MULTIPLE VITAMINS WITH IRON [Concomitant]
     Dosage: 1 DF, QD
     Route: 048
     Dates: start: 20070501
  12. RETIN-A [Concomitant]
     Active Substance: TRETINOIN
     Dosage: 1 DF, PRN
     Route: 061
     Dates: start: 20161108
  13. LASIX [Concomitant]
     Active Substance: FUROSEMIDE
     Dosage: 20 MG, QD
     Route: 048
     Dates: start: 20161119, end: 20180128
  14. ASTELIN [Concomitant]
     Active Substance: AZELASTINE HYDROCHLORIDE
     Dosage: 2 SPRAYS, QD
     Route: 045
  15. ELAVIL [Concomitant]
     Active Substance: AMITRIPTYLINE HYDROCHLORIDE
     Dosage: 25 MG, QHS
     Route: 048
     Dates: end: 20190107
  16. SUPER B COMPLEX WITH VITAMIN C [Concomitant]
     Dosage: 1 DF, QD
     Route: 048
  17. SOMA [Concomitant]
     Active Substance: CARISOPRODOL
     Dosage: 1 TABLET, QHS
     Route: 048
  18. LIDEX [Concomitant]
     Active Substance: FLUOCINONIDE
     Dosage: UNK, BID
     Route: 061
     Dates: start: 20171127, end: 20190213
  19. ZOFRAN [Concomitant]
     Active Substance: ONDANSETRON HYDROCHLORIDE
     Dosage: 1 DF, QD AS NEEDED
     Route: 048
     Dates: end: 20190213

REACTIONS (4)
  - Helicobacter test positive [Unknown]
  - Gastric ulcer [Recovered/Resolved]
  - Coeliac artery stenosis [Unknown]
  - Urinary tract infection [Unknown]

NARRATIVE: CASE EVENT DATE: 20171003
